FAERS Safety Report 9248610 (Version 1)
Quarter: 2013Q2

REPORT INFORMATION
  Report Type: Spontaneous
  Country: GR (occurrence: GR)
  Receive Date: 20130423
  Receipt Date: 20130423
  Transmission Date: 20140414
  Serious: Yes (Life-Threatening, Other)
  Sender: FDA-Public Use
  Company Number: GR-ASTRAZENECA-2013SE26840

PATIENT
  Age: 75 Year
  Sex: Female
  Weight: 60 kg

DRUGS (2)
  1. XYLOCAINE [Suspect]
     Indication: HERNIA PAIN
     Dates: start: 20130319, end: 20130319
  2. LOSEC [Suspect]
     Route: 048

REACTIONS (3)
  - Burning sensation mucosal [Not Recovered/Not Resolved]
  - Emetophobia [Not Recovered/Not Resolved]
  - Drug hypersensitivity [Unknown]
